FAERS Safety Report 9430301 (Version 1)
Quarter: 2013Q3

REPORT INFORMATION
  Report Type: Report from Study
  Country: US (occurrence: US)
  Receive Date: 20130730
  Receipt Date: 20130730
  Transmission Date: 20140515
  Serious: No
  Sender: FDA-Public Use
  Company Number: US-ABBOTT-13P-163-1078019-00

PATIENT
  Age: 67 Year
  Sex: Male
  Weight: 105.33 kg

DRUGS (9)
  1. NIASPAN (COATED) [Suspect]
     Indication: BLOOD TRIGLYCERIDES INCREASED
     Dosage: EVERY NIGHT
     Dates: start: 201210
  2. ASPIRIN [Concomitant]
     Indication: PRODUCT USED FOR UNKNOWN INDICATION
     Dosage: TWICE DAILY
  3. LIPITOR [Concomitant]
     Indication: PRODUCT USED FOR UNKNOWN INDICATION
  4. BYSTOLIC [Concomitant]
     Indication: PRODUCT USED FOR UNKNOWN INDICATION
  5. LISINOPRIL/HYDROCHLOORTHIAZIDE [Concomitant]
     Indication: PRODUCT USED FOR UNKNOWN INDICATION
  6. AVODART [Concomitant]
     Indication: PROSTATIC DISORDER
  7. MULTIVITAMIN [Concomitant]
     Indication: PRODUCT USED FOR UNKNOWN INDICATION
  8. VITAMIN D3 [Concomitant]
     Indication: PRODUCT USED FOR UNKNOWN INDICATION
  9. FISH OIL [Concomitant]
     Indication: PRODUCT USED FOR UNKNOWN INDICATION
     Dosage: TWICE DAILY

REACTIONS (4)
  - Osteoarthritis [Not Recovered/Not Resolved]
  - Flushing [Recovered/Resolved]
  - Feeling hot [Recovered/Resolved]
  - Chondropathy [Not Recovered/Not Resolved]
